FAERS Safety Report 11816047 (Version 1)
Quarter: 2015Q4

REPORT INFORMATION
  Report Type: Spontaneous
  Country: US (occurrence: US)
  Receive Date: 20151209
  Receipt Date: 20151209
  Transmission Date: 20160305
  Serious: No
  Sender: FDA-Public Use
  Company Number: US-GALDERMA-US15002891

PATIENT
  Age: 53 Year
  Sex: Female

DRUGS (2)
  1. ACZONE [Concomitant]
     Active Substance: DAPSONE
     Indication: ROSACEA
     Route: 061
  2. METROGEL [Suspect]
     Active Substance: METRONIDAZOLE
     Indication: ROSACEA
     Route: 061

REACTIONS (1)
  - Drug ineffective [Unknown]
